FAERS Safety Report 13514397 (Version 1)
Quarter: 2017Q2

REPORT INFORMATION
  Report Type: Spontaneous
  Country: US (occurrence: US)
  Receive Date: 20170504
  Receipt Date: 20170504
  Transmission Date: 20170830
  Serious: No
  Sender: FDA-Public Use
  Company Number: US-ABBVIE-16P-163-1685183-00

PATIENT
  Sex: Female

DRUGS (1)
  1. CREON [Suspect]
     Active Substance: PANCRELIPASE AMYLASE\PANCRELIPASE LIPASE\PANCRELIPASE PROTEASE
     Indication: PANCREATITIS
     Dosage: 2-3 WITH MEALS
     Route: 048

REACTIONS (3)
  - Lipase increased [Not Recovered/Not Resolved]
  - Fat intolerance [Not Recovered/Not Resolved]
  - Amylase increased [Not Recovered/Not Resolved]
